FAERS Safety Report 25725605 (Version 1)
Quarter: 2025Q3

REPORT INFORMATION
  Report Type: Spontaneous
  Country: RU (occurrence: RU)
  Receive Date: 20250826
  Receipt Date: 20250826
  Transmission Date: 20251020
  Serious: Yes (Other)
  Sender: ROCHE
  Company Number: RU-ROCHE-10000365093

PATIENT
  Age: 69 Year
  Sex: Female

DRUGS (4)
  1. VEMURAFENIB [Suspect]
     Active Substance: VEMURAFENIB
     Indication: Malignant melanoma stage I
     Route: 065
     Dates: start: 202207, end: 202211
  2. VEMURAFENIB [Suspect]
     Active Substance: VEMURAFENIB
     Dosage: FOR 21 DAYS, FOLLOWED BY A 7 DAY BREAK
     Route: 065
     Dates: start: 202212
  3. COBIMETINIB [Suspect]
     Active Substance: COBIMETINIB
     Indication: Malignant melanoma stage I
     Route: 065
     Dates: start: 202207, end: 202211
  4. COBIMETINIB [Suspect]
     Active Substance: COBIMETINIB
     Dosage: FOR 21 DAYS, FOLLOWED BY A 7 DAY BREAK
     Route: 065
     Dates: start: 202212

REACTIONS (9)
  - Rash papular [Recovering/Resolving]
  - Pyrexia [Recovering/Resolving]
  - Incision site abscess [Recovering/Resolving]
  - Metastases to lung [Recovering/Resolving]
  - Skin toxicity [Recovering/Resolving]
  - Bronchitis chronic [Recovering/Resolving]
  - Pulmonary mass [Recovering/Resolving]
  - Lymphadenopathy [Recovering/Resolving]
  - General physical health deterioration [Recovering/Resolving]
